FAERS Safety Report 6688744-2 (Version None)
Quarter: 2010Q2

REPORT INFORMATION
  Report Type: 
  Country: None (occurrence: None)
  Receive Date: 20100420
  Receipt Date: 20100409
  Transmission Date: 20101027
  Serious: Yes (Hospitalization)
  Sender: FDA-Public Use
  Company Number: B0645804A

PATIENT
  Sex: Male
  Weight: 71 kg

DRUGS (4)
  1. LAPATINIB [Suspect]
     Indication: NEOPLASM
     Dosage: 1000MG PER DAY
     Route: 048
     Dates: start: 20100309
  2. SORAFENIB [Suspect]
     Indication: NEOPLASM
     Dosage: 400MG TWICE PER DAY
     Route: 048
     Dates: start: 20100309
  3. CO-EFFERALGAN [Concomitant]
     Indication: PAIN
     Route: 048
     Dates: start: 20100331
  4. PREDNISONE TAB [Concomitant]
     Indication: ASTHENIA
     Route: 048
     Dates: start: 20100331

REACTIONS (3)
  - ASTHENIA [None]
  - DYSPHAGIA [None]
  - VOMITING [None]
